FAERS Safety Report 6162222-1 (Version None)
Quarter: 2009Q2

REPORT INFORMATION
  Report Type: 
  Country: None (occurrence: None)
  Receive Date: 20090417
  Receipt Date: 20090409
  Transmission Date: 20091009
  Serious: Yes (Other)
  Sender: FDA-Public Use
  Company Number: 2009-01302

PATIENT
  Age: 56 Year

DRUGS (3)
  1. VELCADE [Suspect]
     Indication: MULTIPLE MYELOMA
     Dosage: 1.3 MG/M2, INTRAVENOUS
     Route: 042
     Dates: start: 20071210, end: 20080114
  2. DEXAMETHASONE [Concomitant]
  3. THALIDOMIDE [Concomitant]

REACTIONS (3)
  - ASTHENIA [None]
  - CRYPTOCOCCOSIS [None]
  - MENINGITIS CRYPTOCOCCAL [None]
